FAERS Safety Report 9717426 (Version 1)
Quarter: 2013Q4

REPORT INFORMATION
  Report Type: Spontaneous
  Country: US (occurrence: US)
  Receive Date: 20131127
  Receipt Date: 20131127
  Transmission Date: 20140711
  Serious: No
  Sender: FDA-Public Use
  Company Number: US-GILEAD-2009-0019682

PATIENT
  Sex: Female
  Weight: 61.23 kg

DRUGS (13)
  1. LETAIRIS [Suspect]
     Indication: PULMONARY ARTERIAL HYPERTENSION
     Route: 048
     Dates: start: 20081230
  2. LASIX [Concomitant]
  3. UNSPECIFIED INGREDIENT [Concomitant]
  4. CHOLESTYRAMINE [Concomitant]
  5. BROVANA [Concomitant]
  6. ALBUTEROL [Concomitant]
  7. SPIRIVA [Concomitant]
  8. SULFASALAZINE [Concomitant]
  9. PROZAC [Concomitant]
  10. TEMAZEPAM [Concomitant]
  11. XANAX [Concomitant]
  12. HYDROXYZINE [Concomitant]
  13. CORTIZONE [Concomitant]

REACTIONS (1)
  - Oedema [Unknown]
